FAERS Safety Report 12882154 (Version 1)
Quarter: 2016Q4

REPORT INFORMATION
  Report Type: Report from Study
  Country: CA (occurrence: CA)
  Receive Date: 20161025
  Receipt Date: 20161025
  Transmission Date: 20170207
  Serious: Yes (Other)
  Sender: FDA-Public Use
  Company Number: CA-JNJFOC-20161016029

PATIENT
  Age: 57 Year
  Sex: Female

DRUGS (1)
  1. SIMPONI [Suspect]
     Active Substance: GOLIMUMAB
     Indication: ANKYLOSING SPONDYLITIS
     Route: 058
     Dates: start: 20140401

REACTIONS (5)
  - Wound infection [Unknown]
  - Animal bite [Unknown]
  - Off label use [Unknown]
  - Product use issue [Unknown]
  - Bronchitis [Unknown]

NARRATIVE: CASE EVENT DATE: 20140401
